FAERS Safety Report 20157818 (Version 2)
Quarter: 2021Q4

REPORT INFORMATION
  Report Type: Report from Study
  Country: PE (occurrence: PE)
  Receive Date: 20211207
  Receipt Date: 20211214
  Transmission Date: 20220304
  Serious: Yes (Other)
  Sender: FDA-Public Use
  Company Number: PE-009507513-2009PER001864

PATIENT
  Age: 63 Year
  Sex: Female
  Weight: 75 kg

DRUGS (19)
  1. JANUMET [Suspect]
     Active Substance: METFORMIN HYDROCHLORIDE\SITAGLIPTIN PHOSPHATE
     Indication: Type 2 diabetes mellitus
     Dosage: UNK
     Route: 048
     Dates: start: 202002
  2. JANUMET [Suspect]
     Active Substance: METFORMIN HYDROCHLORIDE\SITAGLIPTIN PHOSPHATE
     Dosage: 1 TABLET DAILY
     Route: 048
     Dates: start: 202008, end: 202107
  3. JANUMET [Suspect]
     Active Substance: METFORMIN HYDROCHLORIDE\SITAGLIPTIN PHOSPHATE
     Dosage: 1 DOSAGE FORM
     Route: 048
     Dates: start: 20211129
  4. JANUMET [Suspect]
     Active Substance: METFORMIN HYDROCHLORIDE\SITAGLIPTIN PHOSPHATE
     Indication: Type 2 diabetes mellitus
     Dosage: 1 TABLET DAILY
     Route: 048
     Dates: start: 2018
  5. JANUMET [Suspect]
     Active Substance: METFORMIN HYDROCHLORIDE\SITAGLIPTIN PHOSPHATE
     Dosage: 1 TABLET, QD
     Route: 048
     Dates: start: 2017
  6. JANUMET [Suspect]
     Active Substance: METFORMIN HYDROCHLORIDE\SITAGLIPTIN PHOSPHATE
     Dosage: 1 TABLET, QD
     Route: 048
     Dates: start: 2019
  7. JANUMET [Suspect]
     Active Substance: METFORMIN HYDROCHLORIDE\SITAGLIPTIN PHOSPHATE
     Indication: Type 2 diabetes mellitus
     Dosage: UNK
     Route: 048
     Dates: start: 202002, end: 202007
  8. HYDROCHLOROTHIAZIDE\TELMISARTAN [Concomitant]
     Active Substance: HYDROCHLOROTHIAZIDE\TELMISARTAN
     Indication: Hypertension
     Dosage: 80/25 MG DAILY IN THE MORNINGS
     Dates: start: 2016
  9. GLUCERNA [AMINO ACIDS NOS;CARTHAMUS TINCTORIUS OIL;FRUCTOSE;GLYCINE MA [Concomitant]
     Dosage: UNK
     Dates: start: 2016
  10. COLNATUR [Concomitant]
     Indication: Muscular weakness
     Dosage: 10 GRAM
     Route: 048
     Dates: start: 2016
  11. COLNATUR [Concomitant]
     Indication: Joint instability
  12. NABILA [NEBIVOLOL HYDROCHLORIDE] [Concomitant]
     Dosage: UNK
  13. NABILA [NEBIVOLOL HYDROCHLORIDE] [Concomitant]
     Dosage: UNK
  14. NABILA [NEBIVOLOL HYDROCHLORIDE] [Concomitant]
     Dosage: UNK
  15. PROVERA [Concomitant]
     Active Substance: MEDROXYPROGESTERONE ACETATE
     Dosage: UNK
  16. PROVERA [Concomitant]
     Active Substance: MEDROXYPROGESTERONE ACETATE
     Dosage: UNK
  17. PROVERA [Concomitant]
     Active Substance: MEDROXYPROGESTERONE ACETATE
     Dosage: UNK
  18. ASPIRIN [Concomitant]
     Active Substance: ASPIRIN
     Indication: Prophylaxis
     Dosage: 100 MG, 1 UNIT AFTER LUNCH
     Route: 048
     Dates: start: 2018, end: 20201227
  19. ASPIRIN [Concomitant]
     Active Substance: ASPIRIN
     Dosage: 100 MG, 1 UNIT AFTER LUNCH
     Route: 048
     Dates: start: 202105

REACTIONS (23)
  - Endometrial hypertrophy [Recovering/Resolving]
  - Procedural pain [Recovered/Resolved]
  - Food craving [Recovered/Resolved]
  - Heart rate decreased [Recovered/Resolved]
  - Blood pressure systolic increased [Recovering/Resolving]
  - Fluid retention [Recovered/Resolved]
  - Anxiety [Recovered/Resolved]
  - Blood pressure increased [Recovered/Resolved]
  - Headache [Recovered/Resolved]
  - Blood glucose decreased [Recovered/Resolved]
  - Hyperhidrosis [Recovered/Resolved]
  - Dizziness [Recovered/Resolved]
  - Asthenia [Recovered/Resolved]
  - Blood glucose increased [Recovered/Resolved]
  - Blood glucose increased [Recovered/Resolved]
  - Blood glucose increased [Recovered/Resolved]
  - Blood triglycerides increased [Unknown]
  - Product prescribing issue [Unknown]
  - Incorrect dose administered [Unknown]
  - Incorrect dose administered [Unknown]
  - Incorrect dose administered [Unknown]
  - Product prescribing issue [Unknown]
  - Incorrect dose administered [Unknown]

NARRATIVE: CASE EVENT DATE: 20190101
